FAERS Safety Report 9337931 (Version 1)
Quarter: 2013Q2

REPORT INFORMATION
  Report Type: Spontaneous
  Country: US (occurrence: US)
  Receive Date: 20130609
  Receipt Date: 20130609
  Transmission Date: 20140414
  Serious: Yes (Other)
  Sender: FDA-Public Use
  Company Number: PHHY2013US057406

PATIENT
  Age: 20 Month
  Sex: Female

DRUGS (4)
  1. CICLOSPORIN [Suspect]
     Indication: IMMUNOSUPPRESSION
  2. MYCOPHENOLATE MOFETIL [Concomitant]
  3. STEROIDS NOS [Concomitant]
     Route: 048
  4. IMMUNOGLOBULIN I.V [Concomitant]
     Indication: IMMUNOSUPPRESSION
     Dosage: 1 G/KG PER DAY
     Route: 042

REACTIONS (2)
  - Coombs positive haemolytic anaemia [Recovered/Resolved]
  - Disease recurrence [Recovered/Resolved]
